FAERS Safety Report 16189225 (Version 1)
Quarter: 2019Q2

REPORT INFORMATION
  Report Type: Spontaneous
  Country: US (occurrence: US)
  Receive Date: 20190411
  Receipt Date: 20190411
  Transmission Date: 20190711
  Serious: No
  Sender: FDA-Public Use
  Company Number: None

PATIENT
  Age: 41 Year
  Sex: Female
  Weight: 87.75 kg

DRUGS (10)
  1. AIMOVIG 140MG/MONTH, [Concomitant]
  2. LORAZEPAM 1MG [Concomitant]
     Active Substance: LORAZEPAM
  3. SPIRONOLACTONE 50MG [Concomitant]
     Active Substance: SPIRONOLACTONE
  4. AIMOVIG [Suspect]
     Active Substance: ERENUMAB-AOOE
     Indication: MIGRAINE
     Dosage: ?          QUANTITY:2 INJECTION(S);OTHER FREQUENCY:MONTHLY;?
     Route: 058
     Dates: start: 20181122, end: 20190406
  5. FETZIMA 120MTG/DAILY [Concomitant]
  6. OMEPRAZOLE 20MG [Concomitant]
     Active Substance: OMEPRAZOLE
  7. LISINOPRIL. [Concomitant]
     Active Substance: LISINOPRIL
  8. MIRTAZIPINE 45MG [Concomitant]
  9. TIZANIDINE 8MG [Concomitant]
  10. TRAZODONE [Concomitant]
     Active Substance: TRAZODONE HYDROCHLORIDE

REACTIONS (10)
  - Arthralgia [None]
  - Alopecia [None]
  - Migraine [None]
  - Depression [None]
  - Gastrointestinal disorder [None]
  - Fibromyalgia [None]
  - Fatigue [None]
  - Constipation [None]
  - Gastrooesophageal reflux disease [None]
  - Myalgia [None]

NARRATIVE: CASE EVENT DATE: 20181130
